FAERS Safety Report 4635442-2 (Version None)
Quarter: 2005Q2

REPORT INFORMATION
  Report Type: 
  Country: None (occurrence: None)
  Receive Date: 20050414
  Receipt Date: 20050411
  Transmission Date: 20051028
  Serious: Yes (Death, Hospitalization)
  Sender: FDA-Public Use
  Company Number: ZA-SANOFI-SYNTHELABO-F01200500575

PATIENT
  Sex: Male

DRUGS (5)
  1. OXALIPLATIN [Suspect]
     Indication: COLON CANCER
     Route: 042
     Dates: start: 20050214, end: 20050214
  2. CAPECITABINE [Suspect]
     Dosage: 1800 MG FOR 2 WEEKS, Q3W
     Route: 048
     Dates: start: 20050214
  3. BEVACIZUMAB [Suspect]
     Route: 042
     Dates: start: 20050214, end: 20050214
  4. RABEPRAZOLE SODIUM [Concomitant]
     Dosage: UNK
     Route: 065
     Dates: start: 20050218
  5. SYNAP FORTE [Concomitant]
     Dosage: UNK
     Route: 065
     Dates: end: 20050312

REACTIONS (7)
  - ABDOMINAL PAIN [None]
  - ANOREXIA [None]
  - DEATH [None]
  - DIARRHOEA [None]
  - FLUID INTAKE REDUCED [None]
  - NAUSEA [None]
  - URINARY TRACT INFECTION [None]
